FAERS Safety Report 17669815 (Version 1)
Quarter: 2020Q2

REPORT INFORMATION
  Report Type: Spontaneous
  Country: US (occurrence: US)
  Receive Date: 20200414
  Receipt Date: 20200414
  Transmission Date: 20200713
  Serious: No
  Sender: FDA-Public Use
  Company Number: None

PATIENT
  Age: 30 Year
  Sex: Female
  Weight: 49.95 kg

DRUGS (14)
  1. CAPECITABINE. [Suspect]
     Active Substance: CAPECITABINE
     Indication: BRAIN NEOPLASM MALIGNANT
     Route: 048
     Dates: start: 20200124
  2. ALBUTEROL 0.63MG/3ML [Concomitant]
  3. ONDANSETRON 8MG [Concomitant]
     Active Substance: ONDANSETRON
  4. FLONASE 50MCG/ACT [Concomitant]
  5. LETROZOLE 2.5MG [Concomitant]
     Active Substance: LETROZOLE
  6. SENOKOT XTRA 17.5MG [Concomitant]
  7. VITAMIN D (CHOL) 400UNITS [Concomitant]
  8. OXYCODONE/APAP 10/325MG [Concomitant]
     Active Substance: ACETAMINOPHEN\OXYCODONE HYDROCHLORIDE
  9. TYLENOL [Concomitant]
     Active Substance: ACETAMINOPHEN
  10. DRONABINOL 2.5MG [Concomitant]
     Active Substance: DRONABINOL
  11. IPRATROPIUM/ALBUTEROL [Concomitant]
     Active Substance: ALBUTEROL\IPRATROPIUM
  12. MIRTAZIPINE 15MG [Concomitant]
  13. FAMOTIDINE 20MG [Concomitant]
     Active Substance: FAMOTIDINE
  14. MIRALAX [Concomitant]
     Active Substance: POLYETHYLENE GLYCOL 3350

REACTIONS (5)
  - Pain [None]
  - Burning sensation [None]
  - Dry skin [None]
  - Skin exfoliation [None]
  - Pruritus [None]

NARRATIVE: CASE EVENT DATE: 20200414
